FAERS Safety Report 11679142 (Version 1)
Quarter: 2015Q4

REPORT INFORMATION
  Report Type: Spontaneous
  Country: US (occurrence: US)
  Receive Date: 20151027
  Receipt Date: 20151027
  Transmission Date: 20160304
  Serious: No
  Sender: FDA-Public Use
  Company Number: US-ELI_LILLY_AND_COMPANY-US201010005144

PATIENT
  Sex: Female

DRUGS (3)
  1. FORTEO [Suspect]
     Active Substance: TERIPARATIDE
     Indication: OSTEOPOROSIS
     Dosage: 20 UG, DAILY (1/D)
     Dates: start: 201008
  2. FORTEO [Suspect]
     Active Substance: TERIPARATIDE
     Dosage: 20 UG, DAILY (1/D)
  3. FORTEO [Suspect]
     Active Substance: TERIPARATIDE
     Dosage: 20 UG, DAILY (1/D)

REACTIONS (15)
  - Arthralgia [Unknown]
  - Eructation [Unknown]
  - Flatulence [Unknown]
  - Dysgeusia [Unknown]
  - Dry eye [Unknown]
  - Weight decreased [Not Recovered/Not Resolved]
  - Injection site haemorrhage [Unknown]
  - Gastrooesophageal reflux disease [Unknown]
  - Sensation of foreign body [Unknown]
  - Weight gain poor [Unknown]
  - Muscle spasms [Unknown]
  - Decreased appetite [Unknown]
  - Pain in extremity [Unknown]
  - Injection site bruising [Unknown]
  - Dyspepsia [Unknown]
